FAERS Safety Report 14602512 (Version 1)
Quarter: 2018Q1

REPORT INFORMATION
  Report Type: Spontaneous
  Country: US (occurrence: US)
  Receive Date: 20180306
  Receipt Date: 20180306
  Transmission Date: 20180509
  Serious: No
  Sender: FDA-Public Use
  Company Number: US-PFIZER INC-2018091869

PATIENT
  Age: 19 Year
  Sex: Female

DRUGS (3)
  1. IBUPROFEN. [Suspect]
     Active Substance: IBUPROFEN
     Indication: ARTHRALGIA
     Dosage: UNK
  2. TYLENOL [Suspect]
     Active Substance: ACETAMINOPHEN
     Indication: ARTHRALGIA
  3. ENBREL [Concomitant]
     Active Substance: ETANERCEPT
     Indication: FAMILIAL MEDITERRANEAN FEVER
     Dosage: 50 MG, QWK
     Dates: start: 2014

REACTIONS (1)
  - Drug ineffective [Unknown]
